FAERS Safety Report 20327656 (Version 2)
Quarter: 2022Q3

REPORT INFORMATION
  Report Type: Report from Study
  Country: BR (occurrence: BR)
  Receive Date: 20220112
  Receipt Date: 20220929
  Transmission Date: 20221027
  Serious: Yes (Hospitalization, Other)
  Sender: FDA-Public Use
  Company Number: BR-JNJFOC-20220111468

PATIENT
  Sex: Female

DRUGS (1)
  1. SIMPONI [Suspect]
     Active Substance: GOLIMUMAB
     Indication: Psoriatic arthropathy
     Route: 058
     Dates: start: 2018, end: 20190220

REACTIONS (10)
  - Pneumonia [Unknown]
  - Furuncle [Recovering/Resolving]
  - Bedridden [Unknown]
  - Liver disorder [Unknown]
  - Renal disorder [Unknown]
  - Spinal pain [Unknown]
  - Psoriasis [Unknown]
  - COVID-19 [Unknown]
  - Rheumatic disorder [Unknown]
  - Product distribution issue [Unknown]

NARRATIVE: CASE EVENT DATE: 20210101
